FAERS Safety Report 15477211 (Version 5)
Quarter: 2019Q2

REPORT INFORMATION
  Report Type: Spontaneous
  Country: US (occurrence: US)
  Receive Date: 20181009
  Receipt Date: 20190617
  Transmission Date: 20190711
  Serious: Yes (Hospitalization, Other)
  Sender: FDA-Public Use
  Company Number: US-PFIZER INC-2018401492

PATIENT
  Age: 55 Year
  Sex: Female

DRUGS (2)
  1. CORN BINDER (ZEA MAYS SEED) [Suspect]
     Active Substance: CORN
     Dosage: UNK
  2. TETRACYCLINE HCL [Suspect]
     Active Substance: TETRACYCLINE HYDROCHLORIDE
     Indication: SKIN INFECTION
     Dosage: UNK

REACTIONS (5)
  - Eating disorder [Unknown]
  - Reaction to excipient [Not Recovered/Not Resolved]
  - Drug hypersensitivity [Not Recovered/Not Resolved]
  - Vomiting [Recovered/Resolved]
  - Anaphylactic reaction [Not Recovered/Not Resolved]
